FAERS Safety Report 5407535-3 (Version None)
Quarter: 2007Q3

REPORT INFORMATION
  Report Type: 
  Country: None (occurrence: None)
  Receive Date: 20070713
  Receipt Date: 20070427
  Transmission Date: 20080115
  Serious: No
  Sender: FDA-Public Use
  Company Number: 2007SP001543

PATIENT
  Age: 66 Year
  Sex: Male
  Weight: 101.6057 kg

DRUGS (10)
  1. LUNESTA [Suspect]
     Indication: INSOMNIA
     Dosage: 3 MG; PRN; ORAL; 1.5 MG; PRN; ORAL
     Route: 048
     Dates: start: 20070101
  2. LUNESTA [Suspect]
     Indication: INSOMNIA
     Dosage: 3 MG; PRN; ORAL; 1.5 MG; PRN; ORAL
     Route: 048
     Dates: start: 20070101
  3. HYDROCODONE BITARTRATE [Concomitant]
  4. FEXOFENADINE [Concomitant]
  5. ALLOPURINOL [Concomitant]
  6. LESCOL [Concomitant]
  7. SKELAXIN [Concomitant]
  8. UROCIT-K [Concomitant]
  9. ASPIRIN [Concomitant]
  10. GLUCOSAMINE W/ CHONDROITIN [Concomitant]

REACTIONS (2)
  - DYSGEUSIA [None]
  - MIDDLE INSOMNIA [None]
